FAERS Safety Report 4847322-8 (Version None)
Quarter: 2005Q4

REPORT INFORMATION
  Report Type: 
  Country: None (occurrence: None)
  Receive Date: 20051205
  Receipt Date: 20051205
  Transmission Date: 20060501
  Serious: No
  Sender: FDA-Public Use
  Company Number: None

PATIENT
  Age: 65 Year
  Sex: Male
  Weight: 68.0396 kg

DRUGS (1)
  1. FENTANYL [Suspect]
     Indication: INTERVERTEBRAL DISC DEGENERATION
     Dosage: 3-DAY PATCH-RENEWED AFTER
     Dates: start: 20050901, end: 20051104

REACTIONS (3)
  - CRYING [None]
  - DEPRESSION [None]
  - EMOTIONAL DISORDER [None]
